FAERS Safety Report 23874312 (Version 3)
Quarter: 2024Q4

REPORT INFORMATION
  Report Type: Spontaneous
  Country: US (occurrence: US)
  Receive Date: 20240520
  Receipt Date: 20241029
  Transmission Date: 20250115
  Serious: Yes (Death, Hospitalization, Other)
  Sender: PFIZER
  Company Number: US-PFIZER INC-202400121186

PATIENT
  Age: 93 Year
  Sex: Male

DRUGS (7)
  1. VYNDAMAX [Suspect]
     Active Substance: TAFAMIDIS
     Indication: Amyloidosis
     Dosage: 61 MG, 1X/DAY
     Dates: start: 2023
  2. DOFETILIDE [Concomitant]
     Active Substance: DOFETILIDE
     Dosage: UNK, 2X/DAY (7AM AND 7PM)
  3. ELIQUIS [Concomitant]
     Active Substance: APIXABAN
     Indication: Atrial fibrillation
     Dosage: 5MG ONCE IN THE MORNING AND ONCE IN THE AFTERNOON
  4. ELIQUIS [Concomitant]
     Active Substance: APIXABAN
     Indication: Thrombosis
  5. METOPROLOL [Concomitant]
     Active Substance: METOPROLOL
     Dosage: UNK
  6. METOPROLOL [Concomitant]
     Active Substance: METOPROLOL
     Dosage: 12.5 MG
     Dates: start: 2023
  7. TORSEMIDE [Concomitant]
     Active Substance: TORSEMIDE
     Indication: Fluid retention
     Dosage: 40MG EVERY MORNING

REACTIONS (6)
  - Acute respiratory failure [Fatal]
  - Cardiac failure congestive [Unknown]
  - Pneumonia [Unknown]
  - Neoplasm malignant [Unknown]
  - Weight decreased [Unknown]
  - Cardiac valve disease [Unknown]

NARRATIVE: CASE EVENT DATE: 20231231
